FAERS Safety Report 5618895-2 (Version None)
Quarter: 2008Q1

REPORT INFORMATION
  Report Type: 
  Country: None (occurrence: None)
  Receive Date: 20080207
  Receipt Date: 20070817
  Transmission Date: 20080703
  Serious: Yes (Hospitalization)
  Sender: FDA-Public Use
  Company Number: FR-SANOFI-SYNTHELABO-A02200702432

PATIENT
  Age: 43 Year
  Sex: Female

DRUGS (1)
  1. MYTELASE [Suspect]
     Indication: DRUG USE FOR UNKNOWN INDICATION
     Dosage: 30 MG
     Route: 048
     Dates: start: 20070601

REACTIONS (10)
  - BACK PAIN [None]
  - MALAISE [None]
  - MOVEMENT DISORDER [None]
  - MUSCLE SPASMS [None]
  - PAIN [None]
  - PAIN IN EXTREMITY [None]
  - POSTURE ABNORMAL [None]
  - SPEECH DISORDER [None]
  - VERTIGO [None]
  - VISUAL DISTURBANCE [None]
